FAERS Safety Report 5762011-3 (Version None)
Quarter: 2008Q2

REPORT INFORMATION
  Report Type: 
  Country: None (occurrence: None)
  Receive Date: 20080603
  Receipt Date: 20080530
  Transmission Date: 20081010
  Serious: Yes (Hospitalization)
  Sender: FDA-Public Use
  Company Number: 2007SP007305

PATIENT
  Age: 67 Year
  Sex: Male
  Weight: 58 kg

DRUGS (15)
  1. PEG-INTRON [Suspect]
     Indication: HEPATITIS C
     Dosage: 100 MCG;QW;SC
     Route: 058
     Dates: start: 20060814, end: 20070313
  2. REBETOL [Suspect]
     Indication: HEPATITIS C
     Dosage: SEE IMAGE
     Route: 048
     Dates: start: 20060814, end: 20060911
  3. REBETOL [Suspect]
     Indication: HEPATITIS C
     Dosage: SEE IMAGE
     Route: 048
     Dates: start: 20060912, end: 20061002
  4. REBETOL [Suspect]
     Indication: HEPATITIS C
     Dosage: SEE IMAGE
     Route: 048
     Dates: start: 20061010, end: 20061029
  5. REBETOL [Suspect]
     Indication: HEPATITIS C
     Dosage: SEE IMAGE
     Route: 048
     Dates: start: 20061114, end: 20061120
  6. REBETOL [Suspect]
     Indication: HEPATITIS C
     Dosage: SEE IMAGE
     Route: 048
     Dates: start: 20061205, end: 20070117
  7. URINORM [Concomitant]
  8. AMLODIPINE [Concomitant]
  9. TICLOPIDINE HCL [Concomitant]
  10. RENIVACE [Concomitant]
  11. ALLOPURINOL [Concomitant]
  12. LIPITOR [Concomitant]
  13. ACINON [Concomitant]
  14. TAMSULOSIN HCL [Concomitant]
  15. MUCOSTA [Concomitant]

REACTIONS (9)
  - BLISTER [None]
  - CELLULITIS [None]
  - EOSINOPHIL COUNT INCREASED [None]
  - ERYTHEMA [None]
  - FLUID RETENTION [None]
  - HAEMOGLOBIN DECREASED [None]
  - INJECTION SITE PAIN [None]
  - LYMPHOCYTE COUNT DECREASED [None]
  - SWELLING [None]
